FAERS Safety Report 4467833-7 (Version None)
Quarter: 2004Q4

REPORT INFORMATION
  Report Type: 
  Country: None (occurrence: None)
  Receive Date: 20041001
  Receipt Date: 20040921
  Transmission Date: 20050328
  Serious: Yes (Life-Threatening, Hospitalization, Other)
  Sender: FDA-Public Use
  Company Number: 2004211535ES

PATIENT
  Age: 60 Year
  Sex: Male

DRUGS (2)
  1. LINEZOLID (LINEZOLID)TABLET [Suspect]
     Indication: INFECTION
     Dosage: 600 MG, BID, ORAL
     Route: 048
     Dates: start: 20040116, end: 20040405
  2. SINTROM [Concomitant]

REACTIONS (3)
  - ANAEMIA [None]
  - CLOSTRIDIUM COLITIS [None]
  - CONDITION AGGRAVATED [None]
